FAERS Safety Report 11145748 (Version 1)
Quarter: 2015Q2

REPORT INFORMATION
  Report Type: Spontaneous
  Country: GB (occurrence: None)
  Receive Date: 20150526
  Receipt Date: 20150526
  Transmission Date: 20150821
  Serious: Yes (Death, Other)
  Sender: FDA-Public Use
  Company Number: 2015-11386

PATIENT
  Age: 79 Year
  Sex: Male

DRUGS (12)
  1. ATENOLOL. [Concomitant]
     Active Substance: ATENOLOL
  2. PIROXICAM. [Concomitant]
     Active Substance: PIROXICAM
  3. TRAMADOL [Concomitant]
     Active Substance: TRAMADOL
  4. GLANDOSANE (CALCIU, CHLORIDE DIHYDRATE, CARMELLOSE SODIUM, MAGNESIUM CHLORIDE HEXAHYDRATE, POTASSIU CHLOIRDE, POTASSIUM PHOSPHATE DIBASIC, AOSIUM CHLORIDE, SORBITOL) [Concomitant]
  5. NICORANDIL [Concomitant]
     Active Substance: NICORANDIL
  6. LANSOPRAZOLE. [Concomitant]
     Active Substance: LANSOPRAZOLE
  7. CLOPIDOGREL [Concomitant]
     Active Substance: CLOPIDOGREL BISULFATE
  8. EYLEA [Suspect]
     Active Substance: AFLIBERCEPT
     Indication: PRODUCT USED FOR UNKNOWN INDICATION
     Route: 047
     Dates: start: 20130916, end: 20150420
  9. AMLODIPINE [Concomitant]
     Active Substance: AMLODIPINE BESYLATE
  10. ATORVASTATIN [Concomitant]
     Active Substance: ATORVASTATIN
  11. MOMETASONE [Concomitant]
     Active Substance: MOMETASONE
  12. RAMIPRIL. [Concomitant]
     Active Substance: RAMIPRIL

REACTIONS (1)
  - Death [None]

NARRATIVE: CASE EVENT DATE: 20150424
